FAERS Safety Report 9386829 (Version 2)
Quarter: 2013Q3

REPORT INFORMATION
  Report Type: Spontaneous
  Country: FR (occurrence: None)
  Receive Date: 20130702
  Receipt Date: 20130718
  Transmission Date: 20140515
  Serious: Yes (Hospitalization)
  Sender: FDA-Public Use
  Company Number: ACO_37052_2013

PATIENT
  Age: 53 Year
  Sex: Female

DRUGS (7)
  1. FAMPYRA (DALFAMPRIDINE) TABLET, 10MG [Suspect]
     Indication: GAIT DISTURBANCE
     Route: 048
     Dates: start: 20130422, end: 20130530
  2. CELLCEPT [Concomitant]
  3. LIORESAL [Concomitant]
  4. LYRICA [Concomitant]
  5. VALIUM [Concomitant]
  6. RIVOTRIL [Concomitant]
  7. MIANSERINE [Concomitant]

REACTIONS (3)
  - Suicide attempt [None]
  - Grand mal convulsion [None]
  - Pneumonia aspiration [None]
